FAERS Safety Report 19984089 (Version 2)
Quarter: 2021Q4

REPORT INFORMATION
  Report Type: Spontaneous
  Country: CN (occurrence: CN)
  Receive Date: 20211022
  Receipt Date: 20211028
  Transmission Date: 20220303
  Serious: Yes (Hospitalization, Other)
  Sender: FDA-Public Use
  Company Number: 2021A779500

PATIENT
  Sex: Female

DRUGS (1)
  1. DAPAGLIFLOZIN [Suspect]
     Active Substance: DAPAGLIFLOZIN
     Dosage: HALF A TABLET AT A TIME
     Route: 048
     Dates: start: 20211013

REACTIONS (2)
  - Perineal erythema [Recovering/Resolving]
  - Necrotising fasciitis [Unknown]

NARRATIVE: CASE EVENT DATE: 20211014
